FAERS Safety Report 8408489-8 (Version None)
Quarter: 2012Q2

REPORT INFORMATION
  Report Type: 
  Country: None (occurrence: None)
  Receive Date: 20120604
  Receipt Date: 20120522
  Transmission Date: 20120825
  Serious: No
  Sender: FDA-Public Use
  Company Number: US-ASTRAZENECA-2012SE32771

PATIENT
  Age: 43 Year
  Sex: Female
  Weight: 59.9 kg

DRUGS (5)
  1. LOPRESSOR [Concomitant]
     Indication: BLOOD PRESSURE ABNORMAL
  2. NEXIUM [Suspect]
     Indication: ULCER HAEMORRHAGE
     Route: 048
  3. NEXIUM [Suspect]
     Indication: GASTROOESOPHAGEAL REFLUX DISEASE
     Route: 048
  4. NEXIUM [Suspect]
     Indication: HIATUS HERNIA
     Route: 048
  5. TOPROL-XL [Suspect]
     Indication: BLOOD PRESSURE ABNORMAL
     Route: 048

REACTIONS (9)
  - DYSPHAGIA [None]
  - DYSPNOEA [None]
  - CHOKING [None]
  - PAIN [None]
  - GASTROOESOPHAGEAL REFLUX DISEASE [None]
  - DRUG EFFECT DELAYED [None]
  - INTENTIONAL DRUG MISUSE [None]
  - CHEST PAIN [None]
  - OFF LABEL USE [None]
